FAERS Safety Report 5044079-5 (Version None)
Quarter: 2006Q2

REPORT INFORMATION
  Report Type: 
  Country: None (occurrence: None)
  Receive Date: 20060601
  Receipt Date: 20060219
  Transmission Date: 20061013
  Serious: No
  Sender: FDA-Public Use
  Company Number: 2006PV008950

PATIENT
  Age: 47 Year
  Sex: Female
  Weight: 120.2032 kg

DRUGS (6)
  1. BYETTA [Suspect]
     Indication: DIABETES MELLITUS NON-INSULIN-DEPENDENT
     Dosage: 5 MCG; BID; SC
     Route: 058
     Dates: start: 20060210
  2. METFORMIN [Concomitant]
  3. HUMULIN [Concomitant]
  4. SYNTHROID [Concomitant]
  5. PRENATAL VITAMINS [Concomitant]
  6. HUMALOG [Concomitant]

REACTIONS (3)
  - DYSARTHRIA [None]
  - NAUSEA [None]
  - WEIGHT DECREASED [None]
